FAERS Safety Report 14578939 (Version 1)
Quarter: 2018Q1

REPORT INFORMATION
  Report Type: Spontaneous
  Country: CN (occurrence: CN)
  Receive Date: 20180227
  Receipt Date: 20180227
  Transmission Date: 20180509
  Serious: Yes (Hospitalization, Other)
  Sender: FDA-Public Use
  Company Number: CN-MYLANLABS-2018M1012957

PATIENT
  Age: 9 Year
  Sex: Male

DRUGS (2)
  1. METHOTREXATE. [Suspect]
     Active Substance: METHOTREXATE
     Indication: ACUTE LYMPHOCYTIC LEUKAEMIA
     Dosage: FOURTH TIME ADMINISTRATION; 5G/M2; ONE-TENTH OF THE TOTAL METHOTREXATE DOSE BUT NOT MORE THAN 0.5...
     Route: 042
  2. AMPHOTERICIN B. [Interacting]
     Active Substance: AMPHOTERICIN B
     Indication: PRODUCT USED FOR UNKNOWN INDICATION
     Route: 065

REACTIONS (10)
  - Heart injury [Recovered/Resolved]
  - Liver injury [Recovered/Resolved]
  - Toxicity to various agents [Recovered/Resolved]
  - Mouth ulceration [Recovered/Resolved]
  - Epilepsy [Recovered/Resolved]
  - Electrolyte imbalance [Recovered/Resolved]
  - Muscle injury [Recovered/Resolved]
  - Vomiting [Recovered/Resolved]
  - Abdominal pain [Recovered/Resolved]
  - Drug interaction [Recovered/Resolved]
